FAERS Safety Report 5199323-0 (Version None)
Quarter: 2006Q4

REPORT INFORMATION
  Report Type: 
  Country: None (occurrence: None)
  Receive Date: 20060919
  Receipt Date: 20060628
  Transmission Date: 20070319
  Serious: Yes (Other)
  Sender: FDA-Public Use
  Company Number: BDI-008378

PATIENT
  Age: 49 Year
  Sex: Male
  Weight: 100 kg

DRUGS (3)
  1. MULTIHANCE [Suspect]
     Indication: DEAFNESS
     Dosage: 20 ML ONCE IV
     Route: 042
     Dates: start: 20060627, end: 20060627
  2. MULTIHANCE [Suspect]
     Indication: NUCLEAR MAGNETIC RESONANCE IMAGING BRAIN
     Dosage: 20 ML ONCE IV
     Route: 042
     Dates: start: 20060627, end: 20060627
  3. MULTIHANCE [Suspect]
     Indication: TINNITUS
     Dosage: 20 ML ONCE IV
     Route: 042
     Dates: start: 20060627, end: 20060627

REACTIONS (1)
  - HYPERSENSITIVITY [None]
